FAERS Safety Report 8974925 (Version 1)
Quarter: 2012Q4

REPORT INFORMATION
  Report Type: 
  Country: US (occurrence: US)
  Receive Date: 20121220
  Receipt Date: 20121220
  Transmission Date: 20130627
  Serious: Yes (Other)
  Sender: FDA-Public Use
  Company Number: US-FRI-1000040976

PATIENT
  Age: 56 Year
  Sex: Female
  Weight: 76 kg

DRUGS (3)
  1. LEVOTHROID [Suspect]
     Indication: BASEDOW^S DISEASE
     Dosage: 150 mcg
     Dates: start: 2009
  2. LEVOTHROID [Suspect]
     Dosage: 300 mcg
  3. ARMOUR THYROID [Suspect]
     Indication: BASEDOW^S DISEASE
     Dosage: 540 mg
     Dates: start: 2005, end: 2009

REACTIONS (11)
  - Cognitive disorder [Unknown]
  - Major depression [Unknown]
  - Fatigue [Unknown]
  - Temperature intolerance [Unknown]
  - Constipation [Unknown]
  - Dry skin [Unknown]
  - Weight increased [Unknown]
  - Anxiety [Unknown]
  - Hair disorder [Unknown]
  - Skin disorder [Unknown]
  - Dry skin [Unknown]
